FAERS Safety Report 9149430 (Version 2)
Quarter: 2013Q1

REPORT INFORMATION
  Report Type: Spontaneous
  Country: JP (occurrence: JP)
  Receive Date: 20130308
  Receipt Date: 20130314
  Transmission Date: 20140127
  Serious: Yes (Hospitalization)
  Sender: FDA-Public Use
  Company Number: JP-NAPPMUNDI-GBR-2013-0013243

PATIENT
  Age: 85 Year
  Sex: Female

DRUGS (11)
  1. BUPRENORPHINE TRANSDERMAL SYSTEM [Suspect]
     Indication: CANCER PAIN
     Dosage: 15 MCG, Q1H
     Route: 062
     Dates: end: 20130209
  2. MIGRISTENE [Concomitant]
     Route: 048
  3. SOLON [Concomitant]
     Route: 048
  4. ATORVASTATIN CALCIUM [Concomitant]
     Route: 048
  5. AMLODIPINE BESILATE [Concomitant]
     Route: 048
  6. OMEPRAL /00661201/ [Concomitant]
  7. PREDNISOLONE [Concomitant]
  8. U PAN [Concomitant]
     Route: 048
  9. JZOLOFT [Concomitant]
     Route: 048
  10. GOODMIN [Concomitant]
     Route: 048
  11. YODEL [Concomitant]
     Route: 048

REACTIONS (3)
  - Somnolence [Recovered/Resolved]
  - Nausea [Recovered/Resolved]
  - Multiple fractures [Unknown]
